FAERS Safety Report 9204863 (Version 2)
Quarter: 2014Q1

REPORT INFORMATION
  Report Type: Spontaneous
  Country: US (occurrence: US)
  Receive Date: 20130402
  Receipt Date: 20140127
  Transmission Date: 20141002
  Serious: Yes (Hospitalization, Other)
  Sender: FDA-Public Use
  Company Number: US-BAYER-2013-039235

PATIENT
  Age: 33 Year
  Sex: Female

DRUGS (2)
  1. YASMIN [Suspect]
     Indication: CONTRACEPTION
     Dosage: UNK
     Dates: start: 20101216
  2. YAZ [Suspect]
     Indication: CONTRACEPTION
     Dosage: UNK
     Dates: start: 20101216, end: 201110

REACTIONS (5)
  - Cholecystitis chronic [None]
  - Gallbladder disorder [None]
  - Injury [None]
  - Pain [None]
  - Pain [None]
